FAERS Safety Report 5088808-3 (Version None)
Quarter: 2006Q3

REPORT INFORMATION
  Report Type: 
  Country: None (occurrence: None)
  Receive Date: 20060825
  Receipt Date: 20060818
  Transmission Date: 20061208
  Serious: Yes (Life-Threatening, Hospitalization)
  Sender: FDA-Public Use
  Company Number: 459235

PATIENT
  Age: 78 Year
  Sex: Male

DRUGS (9)
  1. ARTIST [Suspect]
     Indication: CARDIAC FAILURE
     Route: 048
     Dates: start: 20041028
  2. 8-HOUR BAYER [Concomitant]
     Dosage: 100MG PER DAY
     Route: 048
     Dates: start: 20040427
  3. LASIX [Concomitant]
     Dates: start: 20040427
  4. ALTAT [Concomitant]
     Dates: start: 20040427
  5. SIGMART [Concomitant]
     Dates: start: 20040427
  6. LIPITOR [Concomitant]
     Dates: start: 20040427
  7. URINORM [Concomitant]
  8. ALLEGRA [Concomitant]
     Dates: start: 20051018
  9. UFT [Concomitant]

REACTIONS (5)
  - ANAEMIA [None]
  - ANGINA PECTORIS [None]
  - CARDIAC FAILURE [None]
  - COLORECTAL CANCER [None]
  - FAECES DISCOLOURED [None]
